FAERS Safety Report 25244278 (Version 1)
Quarter: 2025Q2

REPORT INFORMATION
  Report Type: Report from Study
  Country: US (occurrence: US)
  Receive Date: 20250428
  Receipt Date: 20250428
  Transmission Date: 20250717
  Serious: Yes (Hospitalization)
  Sender: ALEXION PHARMACEUTICALS
  Company Number: US-AstraZeneca-CH-00853991A

PATIENT
  Age: 54 Year
  Weight: 107.95 kg

DRUGS (1)
  1. OSIMERTINIB [Suspect]
     Active Substance: OSIMERTINIB
     Indication: Non-small cell lung cancer metastatic
     Dosage: 80 MILLIGRAM, QD

REACTIONS (4)
  - Swelling [Recovering/Resolving]
  - Thrombosis [Recovering/Resolving]
  - Rash [Not Recovered/Not Resolved]
  - Joint swelling [Unknown]
